FAERS Safety Report 10881255 (Version 1)
Quarter: 2015Q1

REPORT INFORMATION
  Report Type: Spontaneous
  Country: US (occurrence: US)
  Receive Date: 20150303
  Receipt Date: 20150303
  Transmission Date: 20150721
  Serious: No
  Sender: FDA-Public Use
  Company Number: US-PFIZER INC-2015076546

PATIENT

DRUGS (2)
  1. TYLENOL [Suspect]
     Active Substance: ACETAMINOPHEN
     Dosage: 3 DF, UNK ((3 TO 4 HOURS)
  2. ADVIL [Suspect]
     Active Substance: IBUPROFEN
     Dosage: 3 DF, UNK (3 TO 4 HOURS)

REACTIONS (2)
  - Drug ineffective [Unknown]
  - Intentional product misuse [Unknown]
